FAERS Safety Report 5935229-4 (Version None)
Quarter: 2008Q4

REPORT INFORMATION
  Report Type: 
  Country: None (occurrence: None)
  Receive Date: 20081030
  Receipt Date: 20081021
  Transmission Date: 20090506
  Serious: Yes (Hospitalization)
  Sender: FDA-Public Use
  Company Number: US-ROCHE-592826

PATIENT
  Age: 70 Year
  Sex: Female

DRUGS (5)
  1. PEGASYS [Suspect]
     Indication: HEPATITIS C
     Route: 065
     Dates: start: 20050101, end: 20050101
  2. COPEGUS [Suspect]
     Indication: HEPATITIS C
     Route: 065
     Dates: start: 20050101, end: 20050101
  3. METFORMIN HYDROCHLORIDE [Concomitant]
  4. AMITRIPTYLINE HCL [Concomitant]
  5. PREMARIN [Concomitant]

REACTIONS (4)
  - BLOOD GLUCOSE INCREASED [None]
  - CONSTIPATION [None]
  - HAEMOGLOBIN DECREASED [None]
  - PYREXIA [None]
